FAERS Safety Report 9400597 (Version 2)
Quarter: 2014Q1

REPORT INFORMATION
  Report Type: Spontaneous
  Country: US (occurrence: US)
  Receive Date: 20130715
  Receipt Date: 20140212
  Transmission Date: 20141002
  Serious: Yes (Hospitalization)
  Sender: FDA-Public Use
  Company Number: US-GLAXOSMITHKLINE-A1032509A

PATIENT
  Age: 60 Year
  Sex: Male

DRUGS (1)
  1. AVANDIA [Suspect]
     Indication: DIABETES MELLITUS
     Route: 065
     Dates: start: 20030412, end: 20110324

REACTIONS (4)
  - Myocardial infarction [Unknown]
  - Acute coronary syndrome [Unknown]
  - Cardiac failure congestive [Unknown]
  - Cardiomyopathy [Unknown]
